FAERS Safety Report 21254657 (Version 1)
Quarter: 2022Q3

REPORT INFORMATION
  Report Type: Spontaneous
  Country: US (occurrence: US)
  Receive Date: 20220825
  Receipt Date: 20220825
  Transmission Date: 20221026
  Serious: No
  Sender: FDA-Public Use
  Company Number: US-BAYER-2022A119488

PATIENT
  Age: 65 Year
  Sex: Male

DRUGS (1)
  1. MIRALAX [Suspect]
     Active Substance: POLYETHYLENE GLYCOL 3350
     Indication: Colonoscopy
     Dosage: ;8 CAPS / 8 DOSE DOSE
     Route: 048
     Dates: start: 20220824, end: 20220824

REACTIONS (2)
  - Off label use [Unknown]
  - Expired product administered [None]

NARRATIVE: CASE EVENT DATE: 20220824
